FAERS Safety Report 9801129 (Version 1)
Quarter: 2014Q1

REPORT INFORMATION
  Report Type: Spontaneous
  Country: US (occurrence: US)
  Receive Date: 20140107
  Receipt Date: 20140107
  Transmission Date: 20141002
  Serious: No
  Sender: FDA-Public Use
  Company Number: US-BAYER-2014-002043

PATIENT
  Age: 84 Year
  Sex: Female
  Weight: 52 kg

DRUGS (5)
  1. ALEVE GELCAPS [Suspect]
     Indication: ARTHRITIS
     Dosage: 1 DF, QD WITH FOOD
     Route: 048
  2. BAYER ASPIRIN REGIMEN ADULT LOW STRENGTH [Suspect]
     Indication: ISCHAEMIC HEART DISEASE PROPHYLAXIS
     Dosage: 1 DF, QD WITH FOOD
     Route: 048
  3. EXFORGE [Concomitant]
  4. CALCIUM W/VITAMIN D NOS [Concomitant]
     Dosage: UNK
  5. FOLIC ACID [Concomitant]

REACTIONS (1)
  - Incorrect drug administration duration [None]
